FAERS Safety Report 22049663 (Version 1)
Quarter: 2023Q1

REPORT INFORMATION
  Report Type: Spontaneous
  Country: US (occurrence: None)
  Receive Date: 20230228
  Receipt Date: 20230228
  Transmission Date: 20230418
  Serious: No
  Sender: FDA-Public Use
  Company Number: None

PATIENT
  Age: 71 Year
  Sex: Female
  Weight: 89.1 kg

DRUGS (2)
  1. TEPEZZA [Suspect]
     Active Substance: TEPROTUMUMAB-TRBW
     Indication: Hyperthyroidism
     Route: 042
  2. TEPEZZA [Suspect]
     Active Substance: TEPROTUMUMAB-TRBW
     Indication: Goitre

REACTIONS (4)
  - Fungal infection [None]
  - Eye pruritus [None]
  - Ear discomfort [None]
  - Vision blurred [None]
